FAERS Safety Report 17699473 (Version 2)
Quarter: 2020Q2

REPORT INFORMATION
  Report Type: Spontaneous
  Country: AU (occurrence: AU)
  Receive Date: 20200423
  Receipt Date: 20200430
  Transmission Date: 20200714
  Serious: Yes (Other)
  Sender: FDA-Public Use
  Company Number: AU-PFIZER INC-2020158759

PATIENT
  Age: 66 Year
  Sex: Female

DRUGS (2)
  1. ALDACTONE [Suspect]
     Active Substance: SPIRONOLACTONE
     Dosage: 25 MG, DAILY (12.5 MG IN THE MORNING, 12.5 MG IN THE EVENING)
  2. FERRITIN [Suspect]
     Active Substance: FERRITIN
     Dosage: UNK

REACTIONS (3)
  - Blood pressure increased [Recovered/Resolved]
  - Mass [Unknown]
  - Contusion [Unknown]

NARRATIVE: CASE EVENT DATE: 20200415
